FAERS Safety Report 23457524 (Version 1)
Quarter: 2024Q1

REPORT INFORMATION
  Report Type: Spontaneous
  Country: JP (occurrence: None)
  Receive Date: 20240130
  Receipt Date: 20240130
  Transmission Date: 20240410
  Serious: Yes (Other)
  Sender: FDA-Public Use
  Company Number: JP-INFO-20240020

PATIENT
  Age: 66 Year
  Sex: Male

DRUGS (8)
  1. ACETAMINOPHEN [Interacting]
     Active Substance: ACETAMINOPHEN
     Dosage: IN TOTAL
     Dates: start: 2021, end: 2021
  2. BUSULFAN [Interacting]
     Active Substance: BUSULFAN
     Indication: Bone marrow conditioning regimen
     Dosage: 3.2 MG/KG ONCE/DAY X 4
     Route: 042
     Dates: start: 2021, end: 2021
  3. FLUDARABINE [Concomitant]
     Active Substance: FLUDARABINE PHOSPHATE
     Indication: Bone marrow conditioning regimen
     Dates: start: 2021, end: 2021
  4. DIPHENHYDRAMINE [Concomitant]
     Active Substance: DIPHENHYDRAMINE
     Dosage: ()
     Dates: start: 2021, end: 2021
  5. VALPROIC ACID [Concomitant]
     Active Substance: VALPROIC ACID
     Indication: Seizure prophylaxis
     Dosage: ()
     Dates: start: 2021, end: 2021
  6. THYMOCYTE IMMUNE GLOBULIN NOS [Concomitant]
     Active Substance: THYMOCYTE IMMUNE GLOBULIN NOS
     Indication: Prophylaxis against graft versus host disease
     Dates: start: 2021, end: 2021
  7. POSACONAZOLE [Interacting]
     Active Substance: POSACONAZOLE
     Dosage: ()
     Dates: start: 2021, end: 2021
  8. METHYLPREDNISOLONE [Concomitant]
     Active Substance: METHYLPREDNISOLONE
     Dosage: ()
     Dates: start: 2021, end: 2021

REACTIONS (7)
  - Drug interaction [Recovered/Resolved]
  - Hallucinations, mixed [Recovered/Resolved]
  - Coma [Recovered/Resolved]
  - Unresponsive to stimuli [Recovered/Resolved]
  - Eye movement disorder [Recovered/Resolved]
  - Respiratory depression [Recovered/Resolved]
  - Status epilepticus [Recovered/Resolved]

NARRATIVE: CASE EVENT DATE: 20210101
